FAERS Safety Report 5646448-9 (Version None)
Quarter: 2008Q1

REPORT INFORMATION
  Report Type: 
  Country: None (occurrence: None)
  Receive Date: 20080303
  Receipt Date: 20080227
  Transmission Date: 20080703
  Serious: Yes (Congenital Anomaly)
  Sender: FDA-Public Use
  Company Number: US-BRISTOL-MYERS SQUIBB COMPANY-13921481

PATIENT
  Sex: Female
  Weight: 3 kg

DRUGS (5)
  1. EFAVIRENZ [Suspect]
     Indication: HIV INFECTION
     Route: 064
     Dates: end: 20070627
  2. COMBIVIR [Suspect]
     Indication: HIV INFECTION
     Route: 064
  3. VIRACEPT [Suspect]
     Indication: HIV INFECTION
     Route: 064
     Dates: start: 20070627, end: 20070627
  4. KALETRA [Suspect]
     Indication: HIV INFECTION
     Route: 064
     Dates: start: 20070913
  5. RETROVIR [Suspect]
     Indication: HIV INFECTION
     Route: 064
     Dates: start: 20080108, end: 20080108

REACTIONS (4)
  - CLEFT LIP AND PALATE [None]
  - CONGENITAL EYE DISORDER [None]
  - FOETAL DAMAGE [None]
  - PREGNANCY [None]
